FAERS Safety Report 23070864 (Version 2)
Quarter: 2023Q4

REPORT INFORMATION
  Report Type: Spontaneous
  Country: US (occurrence: US)
  Receive Date: 20231016
  Receipt Date: 20231023
  Transmission Date: 20240109
  Serious: No
  Sender: FDA-Public Use
  Company Number: US-PFIZER INC-PV202300170120

PATIENT
  Age: 81 Year
  Sex: Female
  Weight: 55.329 kg

DRUGS (1)
  1. IBRANCE [Suspect]
     Active Substance: PALBOCICLIB
     Dosage: 125 MG

REACTIONS (4)
  - Hypertension [Unknown]
  - Hair disorder [Unknown]
  - Pain in extremity [Unknown]
  - Weight fluctuation [Unknown]
